FAERS Safety Report 9931255 (Version 2)
Quarter: 2014Q1

REPORT INFORMATION
  Report Type: Spontaneous
  Country: US (occurrence: US)
  Receive Date: 20140228
  Receipt Date: 20140312
  Transmission Date: 20141002
  Serious: Yes (Death, Other)
  Sender: FDA-Public Use
  Company Number: US-AMGEN-USASP2014013347

PATIENT
  Age: 66 Year
  Sex: Female
  Weight: 58.5 kg

DRUGS (25)
  1. PROLIA [Suspect]
     Indication: OSTEOPOROSIS
     Dosage: UNK UNK, Q6MO
     Route: 058
     Dates: start: 20130131
  2. AMLACTIN [Concomitant]
     Dosage: UNK UNK, BID
     Route: 061
  3. ASPIRIN [Concomitant]
     Dosage: 81 MG, QD
     Route: 048
  4. ATORVASTATIN [Concomitant]
     Dosage: 20 MG, QD
     Route: 048
  5. CARVEDILOL [Concomitant]
     Dosage: 12.5 MG, BID
     Route: 048
  6. CYMBALTA [Concomitant]
     Dosage: 60 MG, QD
     Route: 048
  7. FERROUS SULFATE [Concomitant]
     Dosage: 324 MG, TID
     Route: 048
  8. FISH OIL [Concomitant]
     Dosage: 1000 MG, QD
     Route: 048
  9. FUROSEMIDE [Concomitant]
     Dosage: 40 MG, BID
     Route: 048
  10. HUMALOG [Concomitant]
     Dosage: UNK UNK, TID
     Route: 058
  11. HYDROXYZINE HCL [Concomitant]
     Indication: PRURITUS
     Dosage: UNK UNK, AS NECESSARY
     Route: 048
  12. LANTUS [Concomitant]
     Dosage: UNK UNK, QD
     Route: 058
  13. LISINOPRIL [Concomitant]
     Dosage: 20 MG, QD
     Route: 048
  14. MORPHINE [Concomitant]
     Dosage: 30 MG, Q12H
     Route: 048
  15. NAMENDA [Concomitant]
     Dosage: 10 MG, BID
     Route: 048
  16. OMEGA 3 FISH OIL                   /01334101/ [Concomitant]
     Dosage: 900 MG, QD
     Route: 048
  17. OMEPRAZOLE [Concomitant]
     Dosage: 20 MG, QD
     Route: 048
  18. ONDANSETRON [Concomitant]
     Dosage: 4 MG, Q8H
     Route: 048
  19. ONE TOUCH [Concomitant]
     Dosage: UNK UNK, QD
  20. POTASSIUM CHLORIDE [Concomitant]
     Dosage: UNK UNK, BID
     Route: 048
  21. PROTOPIC [Concomitant]
     Dosage: UNK UNK, BID
     Route: 061
  22. INSULIN [Concomitant]
     Dosage: UNK UNK, QID
  23. VITAMIN D2 [Concomitant]
     Dosage: UNK UNK, Q2WK
     Route: 048
  24. ZENPEP [Concomitant]
     Route: 048
  25. ZOLPIDEM [Concomitant]
     Dosage: 10 MG, AS NECESSARY
     Route: 048

REACTIONS (10)
  - Iron deficiency anaemia [Unknown]
  - Lichenification [Unknown]
  - Neurodermatitis [Unknown]
  - Platelet disorder [Unknown]
  - Squamous cell carcinoma of skin [Unknown]
  - Peripheral vascular disorder [Unknown]
  - Pancreatic disorder [Unknown]
  - Diabetic neuropathy [Unknown]
  - Cardiac arrest [Fatal]
  - Tobacco abuse [Unknown]
